FAERS Safety Report 6276382-5 (Version None)
Quarter: 2009Q3

REPORT INFORMATION
  Report Type: 
  Country: None (occurrence: None)
  Receive Date: 20090720
  Receipt Date: 20090706
  Transmission Date: 20100115
  Serious: Yes (Disabling, Other)
  Sender: FDA-Public Use
  Company Number: A-US2009-26050

PATIENT
  Age: 51 Year
  Sex: Female
  Weight: 86.5 kg

DRUGS (6)
  1. TRACLEER [Suspect]
     Indication: PULMONARY ARTERIAL HYPERTENSION
     Dosage: 125 MG, BID, ORAL ; 62.5 MG, BID, ORAL
     Route: 048
     Dates: start: 20040201, end: 20040301
  2. TRACLEER [Suspect]
     Indication: PULMONARY ARTERIAL HYPERTENSION
     Dosage: 125 MG, BID, ORAL ; 62.5 MG, BID, ORAL
     Route: 048
     Dates: start: 20040301
  3. ATENOLOL [Suspect]
  4. SYNTHROID [Suspect]
  5. ATORVASTATIN CALCIUM [Suspect]
  6. SIMVASTATIN [Suspect]

REACTIONS (3)
  - CEREBRAL MICROANGIOPATHY [None]
  - FACIAL PALSY [None]
  - NEURALGIA [None]
